FAERS Safety Report 6659946-6 (Version None)
Quarter: 2010Q1

REPORT INFORMATION
  Report Type: 
  Country: None (occurrence: None)
  Receive Date: 20100330
  Receipt Date: 20100323
  Transmission Date: 20100710
  Serious: Yes (Other)
  Sender: FDA-Public Use
  Company Number: DE-BRISTOL-MYERS SQUIBB COMPANY-15039928

PATIENT
  Age: 66 Year

DRUGS (1)
  1. MITOMYCIN [Suspect]
     Indication: ANAL CANCER
     Dosage: INJECTION
     Route: 065
     Dates: start: 20000101

REACTIONS (1)
  - PULMONARY ARTERIAL HYPERTENSION [None]
